FAERS Safety Report 5043031-3 (Version None)
Quarter: 2006Q2

REPORT INFORMATION
  Report Type: 
  Country: None (occurrence: None)
  Receive Date: 20060628
  Receipt Date: 20060613
  Transmission Date: 20061013
  Serious: Yes (Hospitalization)
  Sender: FDA-Public Use
  Company Number: 29158

PATIENT
  Age: 60 Year
  Sex: Female

DRUGS (7)
  1. METRONIDAZOLE [Suspect]
     Indication: URINARY TRACT INFECTION
  2. WARFARIN SODIUM [Suspect]
     Indication: PULMONARY EMBOLISM
  3. CEPHALEXIN [Suspect]
     Indication: URINARY TRACT INFECTION
  4. TRIMETHOPRIM [Suspect]
     Indication: URINARY TRACT INFECTION
  5. NIFEDIPINE [Concomitant]
  6. ACEBUTOLOL [Concomitant]
  7. INDAPAMIDE [Concomitant]

REACTIONS (12)
  - ABDOMINAL PAIN [None]
  - DEEP VEIN THROMBOSIS [None]
  - DRUG INTERACTION [None]
  - HAEMOGLOBIN DECREASED [None]
  - HYPOVOLAEMIC SHOCK [None]
  - INTERNATIONAL NORMALISED RATIO INCREASED [None]
  - MUSCLE HAEMORRHAGE [None]
  - PAIN [None]
  - PYREXIA [None]
  - RETROPERITONEAL HAEMATOMA [None]
  - URETERIC OBSTRUCTION [None]
  - WHITE BLOOD CELL COUNT INCREASED [None]
